FAERS Safety Report 6107767-5 (Version None)
Quarter: 2009Q1

REPORT INFORMATION
  Report Type: 
  Country: None (occurrence: None)
  Receive Date: 20090309
  Receipt Date: 20090304
  Transmission Date: 20090719
  Serious: Yes (Hospitalization)
  Sender: FDA-Public Use
  Company Number: B0555111A

PATIENT
  Age: 35 Year
  Sex: Female

DRUGS (2)
  1. AMOXICILLIN [Suspect]
     Indication: BRONCHITIS
     Dosage: 1UNIT SINGLE DOSE
     Route: 048
     Dates: start: 20081204, end: 20081204
  2. FLUTICASONE PROPIONATE [Suspect]
     Indication: BRONCHITIS
     Dosage: 1PUFF SINGLE DOSE
     Route: 055
     Dates: start: 20081204, end: 20081204

REACTIONS (11)
  - BREATH SOUNDS [None]
  - BRONCHOSPASM [None]
  - COUGH [None]
  - DRUG HYPERSENSITIVITY [None]
  - DYSPHONIA [None]
  - DYSPNOEA [None]
  - PAINFUL RESPIRATION [None]
  - PALATAL OEDEMA [None]
  - PYREXIA [None]
  - TACHYCARDIA [None]
  - URTICARIA [None]
